FAERS Safety Report 8543809-5 (Version None)
Quarter: 2012Q3

REPORT INFORMATION
  Report Type: 
  Country: None (occurrence: None)
  Receive Date: 20120727
  Receipt Date: 20120723
  Transmission Date: 20120928
  Serious: Yes (Other)
  Sender: FDA-Public Use
  Company Number: JP-009507513-1207JPN008699

PATIENT

DRUGS (9)
  1. URSO 250 [Concomitant]
     Indication: HEPATITIS C
     Route: 048
  2. CANDESARTAN CILEXETIL [Concomitant]
     Indication: HYPERTENSION
     Route: 048
  3. ROHYPNOL [Concomitant]
     Indication: INSOMNIA
     Route: 048
  4. REBETOL [Suspect]
     Indication: HEPATITIS C
     Route: 048
     Dates: start: 20120621, end: 20120630
  5. PEG-INTRON [Suspect]
     Indication: HEPATITIS C
     Dosage: 1.5MCG/KG/WEEK
     Route: 058
     Dates: start: 20120621, end: 20120628
  6. TELAVIC [Suspect]
     Indication: HEPATITIS C
     Route: 048
     Dates: start: 20120621, end: 20120624
  7. CARVEDILOL [Concomitant]
     Indication: HYPERTENSION
     Route: 048
  8. ADALAT CC [Concomitant]
     Indication: HYPERTENSION
     Route: 048
  9. ZOLPIDEM [Concomitant]
     Indication: INSOMNIA
     Route: 048

REACTIONS (1)
  - RENAL FAILURE ACUTE [None]
